FAERS Safety Report 15343820 (Version 1)
Quarter: 2018Q3

REPORT INFORMATION
  Report Type: Spontaneous
  Country: FR (occurrence: FR)
  Receive Date: 20180903
  Receipt Date: 20180903
  Transmission Date: 20181010
  Serious: Yes (Other)
  Sender: FDA-Public Use
  Company Number: FR-ROCHE-2178350

PATIENT
  Age: 73 Year
  Sex: Female

DRUGS (3)
  1. ZYPREXA [Suspect]
     Active Substance: OLANZAPINE
     Indication: DELIRIUM
     Route: 048
     Dates: start: 20180626
  2. LOXAPAC [Suspect]
     Active Substance: LOXAPINE
     Indication: DELIRIUM
     Route: 048
     Dates: start: 20180626, end: 20180717
  3. VALIUM [Suspect]
     Active Substance: DIAZEPAM
     Indication: DELIRIUM
     Route: 048
     Dates: start: 20180626

REACTIONS (1)
  - Cholestasis [Not Recovered/Not Resolved]

NARRATIVE: CASE EVENT DATE: 20180704
